FAERS Safety Report 11918654 (Version 2)
Quarter: 2021Q3

REPORT INFORMATION
  Report Type: Report from Study
  Country: US (occurrence: US)
  Receive Date: 20160115
  Receipt Date: 20210714
  Transmission Date: 20211014
  Serious: Yes (Hospitalization, Other)
  Sender: FDA-Public Use
  Company Number: US-AMGEN-USASL2016002832

PATIENT
  Age: 66 Year
  Sex: Female

DRUGS (2)
  1. ENBREL [Suspect]
     Active Substance: ETANERCEPT
     Dosage: 50 MILLIGRAM, QWK
     Route: 065
  2. ENBREL [Suspect]
     Active Substance: ETANERCEPT
     Indication: RHEUMATOID ARTHRITIS
     Dosage: 50 MILLIGRAM
     Route: 065
     Dates: start: 2008

REACTIONS (6)
  - Illness [Unknown]
  - Road traffic accident [Unknown]
  - Hip fracture [Unknown]
  - Fall [Recovered/Resolved]
  - Multiple fractures [Unknown]
  - Femur fracture [Unknown]

NARRATIVE: CASE EVENT DATE: 20150802
